FAERS Safety Report 4824443-7 (Version None)
Quarter: 2005Q4

REPORT INFORMATION
  Report Type: 
  Country: None (occurrence: None)
  Receive Date: 20051108
  Receipt Date: 20051020
  Transmission Date: 20060501
  Serious: Yes (Congenital Anomaly)
  Sender: FDA-Public Use
  Company Number: TRT-00013

PATIENT

DRUGS (1)
  1. TRETINOIN [Suspect]
     Dosage: UNK, TOPICAL
     Route: 061

REACTIONS (2)
  - CONGENITAL ACROCHORDON [None]
  - DRUG EXPOSURE DURING PREGNANCY [None]
